FAERS Safety Report 25918774 (Version 1)
Quarter: 2025Q4

REPORT INFORMATION
  Report Type: Spontaneous
  Country: US (occurrence: None)
  Receive Date: 20251010
  Receipt Date: 20251010
  Transmission Date: 20260117
  Serious: Yes (Hospitalization)
  Sender: FDA-CTU
  Company Number: None

PATIENT
  Sex: Male

DRUGS (11)
  1. URSODIOL [Suspect]
     Active Substance: URSODIOL
     Indication: Liver transplant
     Dosage: TAKE 2 CAPSULES (600 MG TOTAL) BY MOUTH 2 (TWO) TIMES DAILY
     Route: 048
     Dates: start: 20230817
  2. ALBUTEROL NEB OB-% [Concomitant]
  3. ASPIRIN LOW TAB 81 MG EG [Concomitant]
  4. CLOPIDOGREL [Concomitant]
     Active Substance: CLOPIDOGREL BISULFATE
  5. FERROUS SULF TAB 325MG [Concomitant]
  6. FOLIC ACID [Concomitant]
     Active Substance: FOLIC ACID
  7. FUROSEMIDE [Concomitant]
     Active Substance: FUROSEMIDE
  8. FUROSEMIDE [Concomitant]
     Active Substance: FUROSEMIDE
  9. FUROSEMIDE TAB 80MG [Concomitant]
  10. GABAPENTIN [Concomitant]
     Active Substance: GABAPENTIN
  11. ACETAMINOPHEN\HYDROCODONE [Concomitant]
     Active Substance: ACETAMINOPHEN\HYDROCODONE

REACTIONS (2)
  - Perforation bile duct [None]
  - Therapy interrupted [None]
